FAERS Safety Report 23742533 (Version 1)
Quarter: 2024Q2

REPORT INFORMATION
  Report Type: Report from Study
  Country: PH (occurrence: None)
  Receive Date: 20240415
  Receipt Date: 20240415
  Transmission Date: 20240716
  Serious: Yes (Death, Other)
  Sender: FDA-Public Use
  Company Number: 2022A191388

PATIENT
  Age: 783 Month
  Sex: Female

DRUGS (1)
  1. FASLODEX [Suspect]
     Active Substance: FULVESTRANT
     Indication: Breast cancer female
     Route: 030
     Dates: start: 202104, end: 202111

REACTIONS (6)
  - Lung disorder [Fatal]
  - Aphonia [Fatal]
  - Dysuria [Unknown]
  - Bone cancer metastatic [Fatal]
  - Gait inability [Fatal]
  - Drug ineffective [Unknown]

NARRATIVE: CASE EVENT DATE: 20211001
